FAERS Safety Report 24619162 (Version 1)
Quarter: 2024Q4

REPORT INFORMATION
  Report Type: Spontaneous
  Country: US (occurrence: US)
  Receive Date: 20241114
  Receipt Date: 20241114
  Transmission Date: 20250115
  Serious: Yes (Other)
  Sender: COOPERSURGICAL
  Company Number: US-COOPERSURGICAL, INC.-2024CPS003363

PATIENT
  Age: 31 Year
  Sex: Female
  Weight: 133.79 kg

DRUGS (1)
  1. PARAGARD T 380A [Suspect]
     Active Substance: COPPER
     Indication: Contraception
     Dosage: UNK
     Route: 015
     Dates: start: 20050301, end: 20160307

REACTIONS (16)
  - Salpingectomy [Unknown]
  - Renal disorder [Unknown]
  - Diabetes mellitus [Unknown]
  - Device breakage [Unknown]
  - Foreign body in reproductive tract [Unknown]
  - Complication of device removal [Unknown]
  - Embedded device [Unknown]
  - Pregnancy with contraceptive device [Recovered/Resolved]
  - Drug ineffective [Unknown]
  - Emotional disorder [Unknown]
  - Hypertension [Unknown]
  - Depression [Unknown]
  - Obesity [Unknown]
  - Heavy menstrual bleeding [Recovered/Resolved]
  - Intentional device use issue [Recovered/Resolved]
  - Off label use [Unknown]

NARRATIVE: CASE EVENT DATE: 20160307
